FAERS Safety Report 8841888 (Version 1)
Quarter: 2012Q4

REPORT INFORMATION
  Report Type: 
  Country: US (occurrence: US)
  Receive Date: 20121016
  Receipt Date: 20121016
  Transmission Date: 20130627
  Serious: No
  Sender: FDA-Public Use
  Company Number: US-MYLANLABS-2012S1000051

PATIENT
  Sex: Male

DRUGS (1)
  1. CARBIDOPA AND LEVODOPA ORALLY DISINTEGRATING TABLETS [Suspect]
     Indication: PARKINSON^S DISEASE
     Dosage: 1 1/2 tablet three times daily
     Route: 048
     Dates: start: 201110

REACTIONS (1)
  - Rash pruritic [Not Recovered/Not Resolved]
